FAERS Safety Report 8557680-9 (Version None)
Quarter: 2012Q2

REPORT INFORMATION
  Report Type: 
  Country: None (occurrence: None)
  Receive Date: 20120418
  Receipt Date: 20110315
  Transmission Date: 20120825
  Serious: Yes (Other)
  Sender: FDA-Public Use
  Company Number: PHHY2011US21192

PATIENT
  Sex: Female

DRUGS (2)
  1. DIOVAN HCT [Suspect]
  2. TEKTURNA HCT [Suspect]

REACTIONS (4)
  - SWELLING FACE [None]
  - PRURITUS [None]
  - LIP SWELLING [None]
  - OEDEMA PERIPHERAL [None]
